FAERS Safety Report 18732287 (Version 2)
Quarter: 2021Q1

REPORT INFORMATION
  Report Type: Spontaneous
  Country: JP (occurrence: JP)
  Receive Date: 20210113
  Receipt Date: 20210331
  Transmission Date: 20210419
  Serious: Yes (Death, Hospitalization, Other)
  Sender: FDA-Public Use
  Company Number: JP-ROCHE-2748481

PATIENT
  Age: 62 Year
  Sex: Male
  Weight: 87 kg

DRUGS (8)
  1. FUROSEMIDE. [Concomitant]
     Active Substance: FUROSEMIDE
     Dosage: DOSAGE IS UNCERTAIN.
     Route: 048
     Dates: start: 20201224
  2. SPIRONOLACTONE. [Concomitant]
     Active Substance: SPIRONOLACTONE
     Dosage: DOSAGE IS UNCERTAIN.
     Route: 048
     Dates: start: 20201224
  3. TECENTRIQ [Suspect]
     Active Substance: ATEZOLIZUMAB
     Indication: HEPATOCELLULAR CARCINOMA
     Route: 041
     Dates: start: 20201211, end: 20210107
  4. EZETIMIBE. [Concomitant]
     Active Substance: EZETIMIBE
     Dosage: DOSAGE IS UNCERTAIN.
     Route: 048
  5. SUJANU [Concomitant]
     Active Substance: IPRAGLIFLOZIN L-PROLINE\SITAGLIPTIN PHOSPHATE
     Route: 048
  6. PARMODIA [Concomitant]
     Active Substance: PEMAFIBRATE
     Route: 048
  7. AVASTIN [Suspect]
     Active Substance: BEVACIZUMAB
     Indication: HEPATOCELLULAR CARCINOMA
     Route: 041
     Dates: start: 20201211, end: 20201211
  8. LOXOPROFEN [Concomitant]
     Active Substance: LOXOPROFEN
     Dosage: DOSAGE IS UNCERTAIN.
     Route: 048
     Dates: start: 20200508

REACTIONS (4)
  - Pleural effusion [Unknown]
  - Shock [Recovered/Resolved]
  - Respiratory failure [Unknown]
  - Hepatocellular carcinoma [Fatal]

NARRATIVE: CASE EVENT DATE: 20210107
